FAERS Safety Report 9520995 (Version 2)
Quarter: 2013Q4

REPORT INFORMATION
  Report Type: Spontaneous
  Country: CA (occurrence: CA)
  Receive Date: 20130913
  Receipt Date: 20131105
  Transmission Date: 20140711
  Serious: Yes (Life-Threatening, Hospitalization, Disabling, Other)
  Sender: FDA-Public Use
  Company Number: CA-BAYER-2013-110567

PATIENT
  Age: 23 Year
  Sex: Female
  Weight: 54 kg

DRUGS (1)
  1. YASMIN 21 [Suspect]
     Indication: ACNE
     Dosage: 1 DF, QD
     Route: 048

REACTIONS (1)
  - Venous occlusion [Recovered/Resolved with Sequelae]
